FAERS Safety Report 5444082-7 (Version None)
Quarter: 2007Q3

REPORT INFORMATION
  Report Type: 
  Country: None (occurrence: None)
  Receive Date: 20070831
  Receipt Date: 20070820
  Transmission Date: 20080115
  Serious: Yes (Hospitalization)
  Sender: FDA-Public Use
  Company Number: 2007SP002939

PATIENT
  Age: 68 Year
  Sex: Male
  Weight: 115.2136 kg

DRUGS (7)
  1. XOPENEX HFA [Suspect]
     Indication: CHRONIC OBSTRUCTIVE PULMONARY DISEASE
     Dosage: PRN; INHALATION
     Route: 055
  2. LASIX [Concomitant]
  3. AVAPRO [Concomitant]
  4. VITAMIN B COMPLEX CAP [Concomitant]
  5. NEXIUM [Concomitant]
  6. ATROVENT [Concomitant]
  7. LEVITRA [Concomitant]

REACTIONS (2)
  - BRONCHITIS [None]
  - CONDITION AGGRAVATED [None]
